FAERS Safety Report 15479480 (Version 1)
Quarter: 2018Q4

REPORT INFORMATION
  Report Type: Spontaneous
  Country: US (occurrence: US)
  Receive Date: 20181009
  Receipt Date: 20181009
  Transmission Date: 20190205
  Serious: Yes (Hospitalization)
  Sender: FDA-Public Use
  Company Number: US-PFIZER INC-2018403265

PATIENT
  Age: 66 Year
  Sex: Female
  Weight: 51 kg

DRUGS (5)
  1. PREDNISONE. [Concomitant]
     Active Substance: PREDNISONE
     Indication: RENAL DISORDER
  2. CELLCEPT [Concomitant]
     Active Substance: MYCOPHENOLATE MOFETIL\MYCOPHENOLATE MOFETIL HYDROCHLORIDE
     Indication: NEOPLASM MALIGNANT
     Dosage: 250 MG, 2X/DAY
     Route: 048
     Dates: start: 2012
  3. CELLCEPT [Concomitant]
     Active Substance: MYCOPHENOLATE MOFETIL\MYCOPHENOLATE MOFETIL HYDROCHLORIDE
     Indication: LIVER DISORDER
  4. RAPAMUNE [Suspect]
     Active Substance: SIROLIMUS
     Indication: HEPATIC CANCER
     Dosage: 2 MG, 1X/DAY (2 TABLETS BY MOUTH ONCE DAILY)
     Route: 048
     Dates: start: 2012
  5. PREDNISONE. [Concomitant]
     Active Substance: PREDNISONE
     Indication: LIVER DISORDER
     Dosage: 5 MG, DAILY
     Route: 048
     Dates: start: 2012

REACTIONS (5)
  - Blood potassium decreased [Recovering/Resolving]
  - Fall [Recovering/Resolving]
  - Loss of consciousness [Recovering/Resolving]
  - Swelling [Recovering/Resolving]
  - Product use in unapproved indication [Unknown]

NARRATIVE: CASE EVENT DATE: 201808
